FAERS Safety Report 16532269 (Version 1)
Quarter: 2019Q3

REPORT INFORMATION
  Report Type: Spontaneous
  Country: US (occurrence: US)
  Receive Date: 20190705
  Receipt Date: 20190705
  Transmission Date: 20191004
  Serious: No
  Sender: FDA-Public Use
  Company Number: US-TEVA-2019-US-1070667

PATIENT
  Sex: Male

DRUGS (1)
  1. DEXTROAMPHET SACCHARAT, AMPHET ASPARTATE, DEXTROAMPHET SULFATE AND AMPHET SULFAT [Suspect]
     Active Substance: AMPHETAMINE ASPARTATE\AMPHETAMINE SULFATE\DEXTROAMPHETAMINE SACCHARATE\DEXTROAMPHETAMINE SULFATE
     Dosage: AMPHETAMINE 5MG/DEXTROAMPHETAMINE 5MG
     Dates: start: 20190311

REACTIONS (7)
  - Palpitations [Unknown]
  - Feeling abnormal [Unknown]
  - Drug ineffective [Unknown]
  - Disturbance in attention [Unknown]
  - Feeling jittery [Unknown]
  - Hyperhidrosis [Unknown]
  - Tremor [Unknown]

NARRATIVE: CASE EVENT DATE: 2019
